FAERS Safety Report 8180488-3 (Version None)
Quarter: 2012Q1

REPORT INFORMATION
  Report Type: 
  Country: None (occurrence: None)
  Receive Date: 20120229
  Receipt Date: 20120217
  Transmission Date: 20120608
  Serious: Yes (Life-Threatening)
  Sender: FDA-Public Use
  Company Number: TCI2011A013618

PATIENT
  Age: 62 Year
  Sex: Male

DRUGS (7)
  1. ACTOS [Suspect]
     Indication: TYPE 2 DIABETES MELLITUS
     Dosage: 15 MG (15 MG,1 IN 1 D) PER ORAL ; 30 MG (30 MG,1 IN 1 D) PER ORAL
     Route: 048
     Dates: start: 20070302, end: 20071206
  2. ACTOS [Suspect]
     Indication: TYPE 2 DIABETES MELLITUS
     Dosage: 15 MG (15 MG,1 IN 1 D) PER ORAL ; 30 MG (30 MG,1 IN 1 D) PER ORAL
     Route: 048
     Dates: start: 20071207, end: 20110630
  3. METFORMIN HCL [Concomitant]
  4. LIVALO [Concomitant]
  5. BASEN OD TABLETS 0.2 (VOGLIBOSE) [Concomitant]
  6. AMARYL [Concomitant]
  7. GLACTIVE (SITAGLIPTIN PHOSPHATE) [Concomitant]

REACTIONS (1)
  - BLADDER CANCER [None]
